FAERS Safety Report 25675112 (Version 1)
Quarter: 2025Q3

REPORT INFORMATION
  Report Type: Other
  Country: US (occurrence: US)
  Receive Date: 20250813
  Receipt Date: 20250813
  Transmission Date: 20251021
  Serious: Yes (Death, Hospitalization, Other)
  Sender: ANI
  Company Number: US-ANIPHARMA-024008

PATIENT
  Age: 45 Year
  Sex: Female

DRUGS (6)
  1. CYCLOPHOSPHAMIDE [Suspect]
     Active Substance: CYCLOPHOSPHAMIDE
     Indication: Castleman^s disease
  2. SIROLIMUS [Concomitant]
     Active Substance: SIROLIMUS
     Indication: Castleman^s disease
  3. RUXOLITINIB [Concomitant]
     Active Substance: RUXOLITINIB
     Indication: Castleman^s disease
  4. TOCILIZUMAB [Concomitant]
     Active Substance: TOCILIZUMAB
     Indication: Product used for unknown indication
  5. ETOPOSIDE [Concomitant]
     Active Substance: ETOPOSIDE
     Indication: Product used for unknown indication
  6. FUROSEMIDE [Concomitant]
     Active Substance: FUROSEMIDE
     Indication: Product used for unknown indication

REACTIONS (4)
  - Calciphylaxis [Fatal]
  - Klebsiella bacteraemia [Fatal]
  - Respiratory distress [Fatal]
  - Hypotension [Fatal]
